FAERS Safety Report 4536460-5 (Version None)
Quarter: 2004Q4

REPORT INFORMATION
  Report Type: 
  Country: None (occurrence: None)
  Receive Date: 20041223
  Receipt Date: 20041215
  Transmission Date: 20050328
  Serious: Yes (Death, Hospitalization)
  Sender: FDA-Public Use
  Company Number: US-JNJFOC-20041105794

PATIENT
  Sex: Female
  Weight: 73.48 kg

DRUGS (4)
  1. DOXIL [Suspect]
     Indication: B-CELL LYMPHOMA
     Route: 042
  2. CYCLOPHOSPHAMIDE [Suspect]
     Indication: B-CELL LYMPHOMA
  3. VINCRISTINE [Suspect]
     Indication: B-CELL LYMPHOMA
  4. PREDNISONE [Suspect]
     Indication: B-CELL LYMPHOMA

REACTIONS (13)
  - BLOOD LACTATE DEHYDROGENASE INCREASED [None]
  - CARDIO-RESPIRATORY ARREST [None]
  - DIFFUSE LARGE B-CELL LYMPHOMA [None]
  - HYPERKALAEMIA [None]
  - HYPOTENSION [None]
  - HYPOXIA [None]
  - LYMPHOMA [None]
  - MALIGNANT NEOPLASM PROGRESSION [None]
  - PANCYTOPENIA [None]
  - RENAL FAILURE ACUTE [None]
  - SEPSIS [None]
  - TUMOUR LYSIS SYNDROME [None]
  - URETERIC OBSTRUCTION [None]
